FAERS Safety Report 9788089 (Version 1)
Quarter: 2013Q4

REPORT INFORMATION
  Report Type: Spontaneous
  Country: US (occurrence: None)
  Receive Date: 20131227
  Receipt Date: 20131227
  Transmission Date: 20140711
  Serious: Yes (Hospitalization)
  Sender: FDA-Public Use
  Company Number: None

PATIENT
  Age: 36 Year
  Sex: Male
  Weight: 72.3 kg

DRUGS (3)
  1. ALKA SELTZER [Suspect]
     Indication: NASOPHARYNGITIS
     Route: 048
  2. IBUPROFEN [Suspect]
     Indication: NASOPHARYNGITIS
     Route: 048
  3. SYNTHROID [Concomitant]

REACTIONS (5)
  - Syncope [None]
  - Melaena [None]
  - Upper gastrointestinal haemorrhage [None]
  - Peptic ulcer [None]
  - Gastric ulcer [None]
